FAERS Safety Report 7979979-7 (Version None)
Quarter: 2011Q4

REPORT INFORMATION
  Report Type: 
  Country: None (occurrence: None)
  Receive Date: 20111214
  Receipt Date: 20111201
  Transmission Date: 20120403
  Serious: Yes (Other)
  Sender: FDA-Public Use
  Company Number: PHEH2009US15238

PATIENT
  Sex: Male

DRUGS (2)
  1. GLEEVEC [Suspect]
     Indication: CHRONIC MYELOID LEUKAEMIA (IN REMISSION)
     Dosage: 100 MG, DAILY
     Route: 048
     Dates: start: 20090721
  2. GLEEVEC [Suspect]
     Dosage: 100 MG, DAILY
     Route: 048
     Dates: start: 20110608

REACTIONS (8)
  - INSOMNIA [None]
  - LACRIMATION INCREASED [None]
  - MUSCULAR WEAKNESS [None]
  - DEMENTIA ALZHEIMER'S TYPE [None]
  - AMNESIA [None]
  - MYALGIA [None]
  - CONFUSIONAL STATE [None]
  - PARAESTHESIA ORAL [None]
